FAERS Safety Report 8412329 (Version 4)
Quarter: 2016Q3

REPORT INFORMATION
  Report Type: Spontaneous
  Country: US (occurrence: US)
  Receive Date: 20111229
  Receipt Date: 20160819
  Transmission Date: 20161109
  Serious: Yes (Hospitalization, Other)
  Sender: FDA-Public Use
  Company Number: CIP11001276

PATIENT
  Age: 76 Year
  Sex: Female

DRUGS (12)
  1. ARTHROTEC [Concomitant]
     Active Substance: DICLOFENAC SODIUM\MISOPROSTOL
  2. ACYCLOVIR. [Concomitant]
     Active Substance: ACYCLOVIR
  3. LIDODERM [Concomitant]
     Active Substance: LIDOCAINE
  4. ACTONEL [Suspect]
     Active Substance: RISEDRONATE SODIUM
     Indication: OSTEOPOROSIS POSTMENOPAUSAL
     Route: 048
     Dates: start: 20021030
  5. COZAAR [Concomitant]
     Active Substance: LOSARTAN POTASSIUM
  6. HYDROCODONE BITARTRATE AND ACETAMINOPHEN [Concomitant]
     Active Substance: ACETAMINOPHEN\HYDROCODONE BITARTRATE
  7. CALCIUM CHLORIDE. [Concomitant]
     Active Substance: CALCIUM CHLORIDE
  8. DIDRONEL [Suspect]
     Active Substance: ETIDRONATE DISODIUM
     Route: 048
     Dates: start: 19931221, end: 19951227
  9. VITAMIN D [Concomitant]
     Active Substance: CHOLECALCIFEROL
  10. CEPHALEXIN. [Concomitant]
     Active Substance: CEPHALEXIN
  11. FOSAMAX [Suspect]
     Active Substance: ALENDRONATE SODIUM
     Route: 048
     Dates: start: 20010525
  12. BONIVA [Suspect]
     Active Substance: IBANDRONATE SODIUM
     Route: 048
     Dates: start: 20051229

REACTIONS (18)
  - Haematoma [Unknown]
  - Femur fracture [Recovered/Resolved]
  - Muscular weakness [Unknown]
  - Depression [Unknown]
  - Pain in extremity [Recovered/Resolved]
  - Gait disturbance [Unknown]
  - Fracture delayed union [Unknown]
  - Scar [Unknown]
  - Oedema peripheral [Unknown]
  - Fracture displacement [Recovered/Resolved]
  - Bone pain [Unknown]
  - Low turnover osteopathy [Unknown]
  - Anxiety [Unknown]
  - Fall [Recovered/Resolved]
  - Femur fracture [Unknown]
  - Fracture displacement [Unknown]
  - Abdominal discomfort [Recovered/Resolved]
  - Stress fracture [Unknown]

NARRATIVE: CASE EVENT DATE: 20080505
